FAERS Safety Report 6754013-5 (Version None)
Quarter: 2010Q2

REPORT INFORMATION
  Report Type: 
  Country: None (occurrence: None)
  Receive Date: 20100603
  Receipt Date: 20100527
  Transmission Date: 20101027
  Serious: Yes (Other)
  Sender: FDA-Public Use
  Company Number: B0657478A

PATIENT
  Sex: Female

DRUGS (1)
  1. AUGMENTIN '125' [Suspect]
     Route: 048
     Dates: start: 20100101, end: 20100101

REACTIONS (7)
  - ANAPHYLACTIC REACTION [None]
  - DIARRHOEA [None]
  - MALAISE [None]
  - PRURITUS [None]
  - RASH [None]
  - SKIN TEST POSITIVE [None]
  - TACHYCARDIA [None]
